FAERS Safety Report 7113863-6 (Version None)
Quarter: 2010Q4

REPORT INFORMATION
  Report Type: 
  Country: None (occurrence: None)
  Receive Date: 20101119
  Receipt Date: 20101108
  Transmission Date: 20110411
  Serious: Yes (Hospitalization)
  Sender: FDA-Public Use
  Company Number: GXKR2010US12606

PATIENT
  Age: 40 Year
  Sex: Female

DRUGS (1)
  1. DIPHENHYDRAMINE HCL [Suspect]
     Route: 065

REACTIONS (11)
  - AGITATION [None]
  - CONFUSIONAL STATE [None]
  - CONVULSION [None]
  - DELIRIUM [None]
  - HYPERTENSION [None]
  - MYDRIASIS [None]
  - OVERDOSE [None]
  - SPEECH DISORDER [None]
  - TACHYCARDIA [None]
  - TONIC CONVULSION [None]
  - TREMOR [None]
